FAERS Safety Report 25988648 (Version 1)
Quarter: 2025Q4

REPORT INFORMATION
  Report Type: Spontaneous
  Country: GB (occurrence: GB)
  Receive Date: 20251103
  Receipt Date: 20251103
  Transmission Date: 20260117
  Serious: Yes (Other)
  Sender: Thea Pharma
  Company Number: None

PATIENT
  Age: 73 Year
  Sex: Male
  Weight: 113 kg

DRUGS (5)
  1. LATANOPROST [Suspect]
     Active Substance: LATANOPROST
     Indication: Product used for unknown indication
     Dosage: ONE DROP TO BE USED AT NIGHT IN THE LEFT EYE INDEFINITELY
     Dates: start: 20250818, end: 20251021
  2. BISACODYL [Concomitant]
     Active Substance: BISACODYL
     Indication: Product used for unknown indication
     Dosage: ONE TABLET AT NIGHT
     Dates: start: 20250730, end: 20250911
  3. LATANOPROST [Concomitant]
     Active Substance: LATANOPROST
     Indication: Product used for unknown indication
     Dosage: ONE DROP TO BE USED AT NIGHT IN THE LEFT EYE INDEFINITELY
     Dates: start: 20250806, end: 20251021
  4. BRINZOLAMIDE [Concomitant]
     Active Substance: BRINZOLAMIDE
     Indication: Product used for unknown indication
     Dosage: ONE DROP TO BE USED TWICE A DAY INDEFINITELY
     Dates: start: 20250905
  5. BISACODYL [Concomitant]
     Active Substance: BISACODYL
     Indication: Product used for unknown indication
     Dosage: TWO TABLETS AT NIGHT
     Dates: start: 20250930

REACTIONS (1)
  - Swelling of eyelid [Recovering/Resolving]

NARRATIVE: CASE EVENT DATE: 20251020
